FAERS Safety Report 25115435 (Version 5)
Quarter: 2025Q3

REPORT INFORMATION
  Report Type: Spontaneous
  Country: US (occurrence: US)
  Receive Date: 20250324
  Receipt Date: 20250702
  Transmission Date: 20251021
  Serious: Yes (Other)
  Sender: BAYER HEALTHCARE PHARMACEUTICALS INC.
  Company Number: US-BAYER-2025A039075

PATIENT
  Age: 73 Year
  Sex: Male

DRUGS (1)
  1. VITRAKVI [Suspect]
     Active Substance: LAROTRECTINIB
     Indication: Papillary thyroid cancer
     Dates: start: 201611, end: 2025

REACTIONS (5)
  - Osteonecrosis [None]
  - Papillary thyroid cancer [None]
  - Arthralgia [Recovering/Resolving]
  - Product dose omission in error [None]
  - Myalgia [None]

NARRATIVE: CASE EVENT DATE: 20230101
